FAERS Safety Report 16765238 (Version 2)
Quarter: 2019Q4

REPORT INFORMATION
  Report Type: Spontaneous
  Country: US (occurrence: US)
  Receive Date: 20190903
  Receipt Date: 20191024
  Transmission Date: 20200122
  Serious: No
  Sender: FDA-Public Use
  Company Number: US-GLAXOSMITHKLINE-US2019AMR156289

PATIENT
  Sex: Female
  Weight: 100 kg

DRUGS (2)
  1. NICORETTE [Suspect]
     Active Substance: NICOTINE
     Indication: SMOKING CESSATION THERAPY
     Dosage: UNK
  2. NICOTINE TRANSDERMAL PATCH [Suspect]
     Active Substance: NICOTINE
     Indication: SMOKING CESSATION THERAPY
     Dosage: UNK, (ONCE)

REACTIONS (4)
  - Therapeutic product effect incomplete [Unknown]
  - Abnormal dreams [Recovered/Resolved]
  - Insomnia [Recovered/Resolved]
  - Nightmare [Recovered/Resolved]
